FAERS Safety Report 4878033-0 (Version None)
Quarter: 2006Q1

REPORT INFORMATION
  Report Type: 
  Country: None (occurrence: None)
  Receive Date: 20060110
  Receipt Date: 20051229
  Transmission Date: 20060701
  Serious: Yes (Other)
  Sender: FDA-Public Use
  Company Number: 2006000768

PATIENT
  Sex: Female

DRUGS (1)
  1. DEPO-PROVERA [Suspect]
     Indication: CONTRACEPTION
     Dosage: 50 MG (50 MG, 1ST INJECTION, EVERY MONTH)
     Dates: start: 20040101, end: 20040101

REACTIONS (6)
  - ARRHYTHMIA [None]
  - EYE SWELLING [None]
  - HYPOTHYROIDISM [None]
  - INAPPROPRIATE SCHEDULE OF DRUG ADMINISTRATION [None]
  - THYROID DISORDER [None]
  - WEIGHT INCREASED [None]
